FAERS Safety Report 19100345 (Version 4)
Quarter: 2021Q2

REPORT INFORMATION
  Report Type: Spontaneous
  Country: US (occurrence: US)
  Receive Date: 20210407
  Receipt Date: 20210513
  Transmission Date: 20210717
  Serious: Yes (Other)
  Sender: FDA-Public Use
  Company Number: US-JNJFOC-20210354543

PATIENT
  Age: 63 Year
  Sex: Female
  Weight: 61.74 kg

DRUGS (7)
  1. SPRAVATO [Suspect]
     Active Substance: ESKETAMINE
     Indication: DEPRESSION
     Dates: start: 20191001, end: 20191010
  2. SPRAVATO [Suspect]
     Active Substance: ESKETAMINE
     Dates: start: 20210225
  3. SPRAVATO [Suspect]
     Active Substance: ESKETAMINE
     Dates: start: 20200521
  4. SPRAVATO [Suspect]
     Active Substance: ESKETAMINE
     Indication: CRYING
     Dates: start: 20200413, end: 20200507
  5. PANTOPRAZOLE [Concomitant]
     Active Substance: PANTOPRAZOLE
  6. SPRAVATO [Suspect]
     Active Substance: ESKETAMINE
     Indication: ANXIETY
     Dates: start: 20191015, end: 20200312
  7. HYDROCODONE [Concomitant]
     Active Substance: HYDROCODONE

REACTIONS (9)
  - Urinary tract infection [Unknown]
  - Capillary fragility [Unknown]
  - Hypotension [Unknown]
  - Euphoric mood [Unknown]
  - Photosensitivity reaction [Unknown]
  - Dry skin [Unknown]
  - Rash [Not Recovered/Not Resolved]
  - Erythema [Recovering/Resolving]
  - Perforated ulcer [Unknown]

NARRATIVE: CASE EVENT DATE: 2020
